FAERS Safety Report 25926549 (Version 1)
Quarter: 2025Q4

REPORT INFORMATION
  Report Type: Report from Study
  Country: US (occurrence: US)
  Receive Date: 20251015
  Receipt Date: 20251015
  Transmission Date: 20260117
  Serious: No
  Sender: SAREPTA THERAPEUTICS
  Company Number: US-SAREPTA THERAPEUTICS INC.-SRP2025-006493

PATIENT
  Age: 8 Year
  Sex: Male
  Weight: 27.9 kg

DRUGS (1)
  1. ELEVIDYS [Suspect]
     Active Substance: DELANDISTROGENE MOXEPARVOVEC-ROKL
     Indication: Duchenne muscular dystrophy
     Dosage: 270 MILLILITER, SINGLE
     Route: 042
     Dates: start: 20250228, end: 20250228

REACTIONS (2)
  - Gamma-glutamyltransferase increased [Recovered/Resolved with Sequelae]
  - Transaminases increased [Recovered/Resolved with Sequelae]

NARRATIVE: CASE EVENT DATE: 20250425
